FAERS Safety Report 26062963 (Version 1)
Quarter: 2025Q4

REPORT INFORMATION
  Report Type: Spontaneous
  Country: EU (occurrence: EU)
  Receive Date: 20251119
  Receipt Date: 20251119
  Transmission Date: 20260117
  Serious: Yes (Hospitalization, Other)
  Sender: MSN LABORATORIES PRIVATE LIMITED
  Company Number: None

PATIENT

DRUGS (7)
  1. PREGABALIN [Suspect]
     Active Substance: PREGABALIN
     Indication: Borderline personality disorder
     Route: 048
  2. PROCHLORPERAZINE [Suspect]
     Active Substance: PROCHLORPERAZINE
     Indication: Borderline personality disorder
     Dosage: UNK
     Route: 065
  3. CLORAZEPIC ACID [Suspect]
     Active Substance: CLORAZEPIC ACID
     Indication: Borderline personality disorder
     Route: 065
  4. PERAZINE [Suspect]
     Active Substance: PERAZINE
     Indication: Borderline personality disorder
     Route: 065
  5. QUETIAPINE FUMARATE [Suspect]
     Active Substance: QUETIAPINE FUMARATE
     Indication: Borderline personality disorder
     Route: 065
  6. TRAZODONE HYDROCHLORIDE [Suspect]
     Active Substance: TRAZODONE HYDROCHLORIDE
     Indication: Borderline personality disorder
     Route: 065
  7. VENLAFAXINE HYDROCHLORIDE [Suspect]
     Active Substance: VENLAFAXINE HYDROCHLORIDE
     Indication: Borderline personality disorder
     Route: 065

REACTIONS (7)
  - Irritability [Unknown]
  - Anxiety [Unknown]
  - Confusional state [Unknown]
  - Altered state of consciousness [Unknown]
  - Withdrawal syndrome [Unknown]
  - Dizziness [Unknown]
  - Drug ineffective [Unknown]
